FAERS Safety Report 15643689 (Version 7)
Quarter: 2022Q3

REPORT INFORMATION
  Report Type: Spontaneous
  Country: US (occurrence: US)
  Receive Date: 20181121
  Receipt Date: 20220909
  Transmission Date: 20221026
  Serious: Yes (Other)
  Sender: FDA-Public Use
  Company Number: US-PFIZER INC-2018479141

PATIENT
  Age: 52 Year
  Sex: Female
  Weight: 170.1 kg

DRUGS (3)
  1. XELJANZ XR [Suspect]
     Active Substance: TOFACITINIB CITRATE
     Indication: Psoriasis
     Dosage: 11 MG
     Dates: start: 201809
  2. XELJANZ XR [Suspect]
     Active Substance: TOFACITINIB CITRATE
     Dosage: 11 MG, 1X/DAY
     Route: 048
     Dates: start: 201905
  3. XARELTO [Concomitant]
     Active Substance: RIVAROXABAN
     Indication: Blood pressure abnormal
     Dosage: 20 MG, 1X/DAY
     Route: 048

REACTIONS (13)
  - Arthropathy [Unknown]
  - Musculoskeletal disorder [Unknown]
  - Measles [Unknown]
  - Off label use [Unknown]
  - Vision blurred [Unknown]
  - Dyspnoea [Unknown]
  - Rash [Unknown]
  - Skin disorder [Unknown]
  - Drug effective for unapproved indication [Unknown]
  - Ocular hyperaemia [Unknown]
  - Back disorder [Unknown]
  - Weight abnormal [Unknown]
  - Herpes zoster [Unknown]

NARRATIVE: CASE EVENT DATE: 20181114
